FAERS Safety Report 12659270 (Version 1)
Quarter: 2016Q3

REPORT INFORMATION
  Report Type: Report from Study
  Country: US (occurrence: US)
  Receive Date: 20160817
  Receipt Date: 20160817
  Transmission Date: 20161109
  Serious: Yes (Hospitalization, Other)
  Sender: FDA-Public Use
  Company Number: US-GILEAD-2016-0228939

PATIENT
  Age: 76 Year
  Sex: Female

DRUGS (16)
  1. LASIX [Concomitant]
     Active Substance: FUROSEMIDE
  2. ACYCLOVIR                          /00587301/ [Concomitant]
     Active Substance: ACYCLOVIR
  3. AZASITE [Concomitant]
     Active Substance: AZITHROMYCIN MONOHYDRATE
  4. SYNTHROID [Concomitant]
     Active Substance: LEVOTHYROXINE SODIUM
  5. ACTIGALL [Concomitant]
     Active Substance: URSODIOL
  6. ADVAIR HFA [Concomitant]
     Active Substance: FLUTICASONE PROPIONATE\SALMETEROL XINAFOATE
  7. DOXYCYCLINE. [Concomitant]
     Active Substance: DOXYCYCLINE
  8. FORTEO [Concomitant]
     Active Substance: TERIPARATIDE
  9. XALATAN [Concomitant]
     Active Substance: LATANOPROST
  10. SILDENAFIL. [Concomitant]
     Active Substance: SILDENAFIL
  11. SINGULAIR [Concomitant]
     Active Substance: MONTELUKAST SODIUM
  12. FISH OIL [Concomitant]
     Active Substance: FISH OIL
  13. GABAPENTIN. [Concomitant]
     Active Substance: GABAPENTIN
  14. AMBRISENTAN [Suspect]
     Active Substance: AMBRISENTAN
     Indication: PULMONARY ARTERIAL HYPERTENSION
     Dosage: 5 MG, QD
     Route: 065
     Dates: start: 20120709
  15. PREMARIN [Concomitant]
     Active Substance: ESTROGENS, CONJUGATED
  16. CALCIUM [Concomitant]
     Active Substance: CALCIUM

REACTIONS (1)
  - Pneumonia [Recovered/Resolved]

NARRATIVE: CASE EVENT DATE: 20160808
